FAERS Safety Report 4856238-2 (Version None)
Quarter: 2005Q4

REPORT INFORMATION
  Report Type: 
  Country: None (occurrence: None)
  Receive Date: 20051215
  Receipt Date: 20051215
  Transmission Date: 20060501
  Serious: Yes (Disabling)
  Sender: FDA-Public Use
  Company Number: None

PATIENT
  Age: 77 Year
  Sex: Female
  Weight: 77.11 kg

DRUGS (17)
  1. RIFAMPIN [Suspect]
     Indication: TUBERCULOSIS
     Dosage: 600MG   QD   PO  (STARTED IN JULY, 5MONTHS)
     Route: 048
  2. LEVOTHYROXINE      125MCG [Suspect]
     Indication: HYPOTHYROIDISM
     Dosage: 125MCG   QD   PO  (DURATION: MORE THAN 15 YEARS)
     Route: 048
  3. PREDNISONE 50MG TAB [Concomitant]
  4. POTASSIUM CHLORIDE [Concomitant]
  5. BACTROBAN [Concomitant]
  6. TOPROL-XL [Concomitant]
  7. ATIVAN [Concomitant]
  8. CYTOMEL [Concomitant]
  9. ETHAMBUTOL [Concomitant]
  10. CIPRO [Concomitant]
  11. BENADRYL [Concomitant]
  12. COLACE [Concomitant]
  13. TYLENOL [Concomitant]
  14. AMMONIUM LACTATE [Concomitant]
  15. ASCORBIC ACID [Concomitant]
  16. DULCOLAX [Concomitant]
  17. LASIX [Concomitant]

REACTIONS (1)
  - BLOOD THYROID STIMULATING HORMONE INCREASED [None]
